FAERS Safety Report 8505815-6 (Version None)
Quarter: 2012Q3

REPORT INFORMATION
  Report Type: 
  Country: None (occurrence: None)
  Receive Date: 20120712
  Receipt Date: 20120705
  Transmission Date: 20120928
  Serious: Yes (Hospitalization, Other)
  Sender: FDA-Public Use
  Company Number: US-BAYER-2012-024502

PATIENT
  Age: 29 Year
  Sex: Female
  Weight: 81.633 kg

DRUGS (6)
  1. ACETAMINOPHEN [Concomitant]
  2. DROSPIRENONE AND ETHINYL ESTRADIOL [Suspect]
     Dosage: UNK
     Dates: start: 20060101, end: 20100101
  3. NEURONTIN [Concomitant]
  4. EFFEXOR [Concomitant]
  5. NAPROXEN [Concomitant]
  6. YASMIN [Suspect]
     Dosage: UNK
     Dates: start: 20060101, end: 20100101

REACTIONS (7)
  - ANHEDONIA [None]
  - GALLBLADDER INJURY [None]
  - PAIN [None]
  - EMOTIONAL DISTRESS [None]
  - ANXIETY [None]
  - CHOLELITHIASIS [None]
  - GENERAL PHYSICAL HEALTH DETERIORATION [None]
